FAERS Safety Report 5239381-8 (Version None)
Quarter: 2007Q1

REPORT INFORMATION
  Report Type: 
  Country: None (occurrence: None)
  Receive Date: 20070214
  Receipt Date: 20070214
  Transmission Date: 20070707
  Serious: Yes (Hospitalization)
  Sender: FDA-Public Use
  Company Number: None

PATIENT
  Age: 71 Year
  Sex: Male
  Weight: 72.5755 kg

DRUGS (4)
  1. METOPROLOL SUCCINATE [Suspect]
     Indication: CARDIAC FAILURE CHRONIC
     Dosage: 25 MG BID
     Dates: start: 20060822, end: 20061012
  2. METOPROLOL SUCCINATE [Suspect]
     Indication: CORONARY ARTERY DISEASE
     Dosage: 25 MG BID
     Dates: start: 20060822, end: 20061012
  3. FUROSEMIDE [Suspect]
     Indication: URINARY RETENTION
     Dosage: 40 MG DAILY
     Dates: start: 20060822, end: 20061012
  4. TERAZOSIN HCL [Suspect]
     Dosage: 2 MG/QHS
     Dates: start: 20061004, end: 20061012

REACTIONS (2)
  - BLOOD PRESSURE DECREASED [None]
  - DIZZINESS [None]
